APPROVED DRUG PRODUCT: KHAPZORY
Active Ingredient: LEVOLEUCOVORIN
Strength: 175MG/VIAL
Dosage Form/Route: POWDER;INTRAVENOUS
Application: N211226 | Product #001
Applicant: ACROTECH BIOPHARMA INC
Approved: Oct 19, 2018 | RLD: Yes | RS: Yes | Type: RX

PATENTS:
Patent 11541012 | Expires: Mar 25, 2039